FAERS Safety Report 5890235-3 (Version None)
Quarter: 2008Q3

REPORT INFORMATION
  Report Type: 
  Country: None (occurrence: None)
  Receive Date: 20080919
  Receipt Date: 20080909
  Transmission Date: 20090109
  Serious: Yes (Other)
  Sender: FDA-Public Use
  Company Number: US-PFIZER INC-2008076407

PATIENT
  Sex: Male
  Weight: 87.727 kg

DRUGS (4)
  1. LIPITOR [Suspect]
     Indication: BLOOD CHOLESTEROL
  2. CRESTOR [Suspect]
     Dates: end: 20080316
  3. VALSARTAN [Concomitant]
  4. METOPROLOL TARTRATE [Concomitant]

REACTIONS (10)
  - ASTHENIA [None]
  - BALANCE DISORDER [None]
  - BURNING SENSATION [None]
  - COORDINATION ABNORMAL [None]
  - FALL [None]
  - FEAR [None]
  - MUSCLE SPASMS [None]
  - MUSCULAR WEAKNESS [None]
  - MYALGIA [None]
  - POOR PERIPHERAL CIRCULATION [None]
